FAERS Safety Report 15326848 (Version 3)
Quarter: 2020Q3

REPORT INFORMATION
  Report Type: Report from Study
  Country: US (occurrence: US)
  Receive Date: 20180828
  Receipt Date: 20200811
  Transmission Date: 20201102
  Serious: Yes (Hospitalization, Other)
  Sender: FDA-Public Use
  Company Number: US-AMGEN-USACT2018097466

PATIENT
  Age: 6 Year
  Sex: Male
  Weight: 14.39 kg

DRUGS (12)
  1. ACETAMINOPHEN. [Concomitant]
     Active Substance: ACETAMINOPHEN
     Dosage: 211.2?224 MILLIGRAM
     Route: 048
     Dates: start: 20180401, end: 20200321
  2. TUMS [Concomitant]
     Active Substance: CALCIUM CARBONATE
     Dosage: 750 MILLIGRAM
     Route: 048
     Dates: start: 20180710
  3. PAMIDRONATE [Suspect]
     Active Substance: PAMIDRONATE DISODIUM
     Indication: PRODUCT USED FOR UNKNOWN INDICATION
     Dosage: UNK
     Route: 042
  4. IBUPROFEN. [Concomitant]
     Active Substance: IBUPROFEN
     Dosage: 70?140 MILLIGRAM
     Route: 048
     Dates: start: 20180401, end: 20200321
  5. VITAMIN D [ERGOCALCIFEROL] [Concomitant]
     Active Substance: ERGOCALCIFEROL
     Indication: OSTEOPOROSIS
     Dosage: 400?800 INTERNATIONAL UNIT
     Route: 048
     Dates: start: 20130501, end: 201810
  6. ZOLEDRONATE [Suspect]
     Active Substance: ZOLEDRONIC ACID
     Indication: PRODUCT USED FOR UNKNOWN INDICATION
     Dosage: UNK
     Route: 042
  7. DENOSUMAB [Suspect]
     Active Substance: DENOSUMAB
     Indication: OSTEOGENESIS IMPERFECTA
     Dosage: 0.2 MILLILITER, Q6MO
     Route: 058
     Dates: start: 20180710
  8. ONDANSETRON [Concomitant]
     Active Substance: ONDANSETRON
     Dosage: 1.264?2 MILLIGRAM
     Route: 048
     Dates: start: 20130501, end: 20180716
  9. LIDOCAINE. [Concomitant]
     Active Substance: LIDOCAINE
     Dosage: 0.04 GRAM
     Route: 061
     Dates: start: 20180615
  10. DIAZEPAM. [Concomitant]
     Active Substance: DIAZEPAM
     Dosage: 1?2 MILLIGRAM
     Route: 048
     Dates: start: 20150101, end: 20180718
  11. MIRALAX [Concomitant]
     Active Substance: POLYETHYLENE GLYCOL 3350
     Dosage: 0.5 UNK
     Route: 048
     Dates: start: 20171001
  12. OXYCODONE [Concomitant]
     Active Substance: OXYCODONE
     Dosage: 1.5?2 MILLIGRAM
     Route: 048
     Dates: start: 20160101

REACTIONS (1)
  - Femur fracture [Recovered/Resolved]

NARRATIVE: CASE EVENT DATE: 20180715
